FAERS Safety Report 21510817 (Version 1)
Quarter: 2022Q4

REPORT INFORMATION
  Report Type: Spontaneous
  Country: US (occurrence: US)
  Receive Date: 20221026
  Receipt Date: 20221026
  Transmission Date: 20230113
  Serious: No
  Sender: FDA-Public Use
  Company Number: US-PURDUE PHARMA-USA-2022-0296583

PATIENT

DRUGS (1)
  1. OXYCODONE HYDROCHLORIDE [Suspect]
     Active Substance: OXYCODONE HYDROCHLORIDE
     Indication: Analgesic therapy
     Dosage: UNK
     Route: 048

REACTIONS (12)
  - Drug withdrawal syndrome [Unknown]
  - Insomnia [Unknown]
  - Migraine [Unknown]
  - Nausea [Unknown]
  - Vomiting [Unknown]
  - Chills [Unknown]
  - Hyperhidrosis [Unknown]
  - Nervousness [Unknown]
  - Drug ineffective [Unknown]
  - Unevaluable event [Unknown]
  - Abdominal pain upper [Unknown]
  - Illness [Unknown]
